FAERS Safety Report 7223858 (Version 2)
Quarter: 2018Q3

REPORT INFORMATION
  Report Type: Not Available
  Country: US (occurrence: US)
  Receive Date: 20091221
  Receipt Date: 20180821
  Transmission Date: 20181010
  Serious: Yes (Other)
  Sender: FDA-Public Use
  Company Number: US-CELGENEUS-163-20785-09120822

PATIENT
  Age: 40 Year
  Sex: Female

DRUGS (1)
  1. THALOMID [Suspect]
     Active Substance: THALIDOMIDE
     Indication: PLASMA CELL MYELOMA
     Dosage: 200 MILLIGRAM
     Route: 048
     Dates: start: 20040719, end: 200906

REACTIONS (1)
  - Human chorionic gonadotropin increased [Unknown]

NARRATIVE: CASE EVENT DATE: 20050516
